FAERS Safety Report 6511493-8 (Version None)
Quarter: 2009Q4

REPORT INFORMATION
  Report Type: 
  Country: None (occurrence: None)
  Receive Date: 20091222
  Receipt Date: 20091215
  Transmission Date: 20100525
  Serious: Yes (Hospitalization)
  Sender: FDA-Public Use
  Company Number: US-SANOFI-AVENTIS-2009SA009728

PATIENT
  Age: 72 Year
  Sex: Male
  Weight: 174.5 kg

DRUGS (12)
  1. PLAVIX [Suspect]
     Indication: THROMBOSIS PROPHYLAXIS
     Route: 048
     Dates: start: 20041102
  2. BLINDED THERAPY [Suspect]
     Route: 065
     Dates: start: 20080226, end: 20091024
  3. ASPIRIN [Suspect]
     Indication: PROPHYLAXIS
     Route: 048
     Dates: start: 20041102
  4. TYLENOL (CAPLET) [Concomitant]
     Dates: start: 20090130
  5. ZETIA [Concomitant]
     Dates: start: 20080211
  6. METOPROLOL TARTRATE [Concomitant]
     Dates: start: 20071017
  7. INSULIN [Concomitant]
     Dates: start: 20060308
  8. GLIPIZIDE [Concomitant]
     Dates: start: 20041102
  9. AZOR [Concomitant]
     Dates: start: 20090811
  10. PRANDIN ^KUHN^ [Concomitant]
     Dates: start: 20041102
  11. SIMVASTATIN [Concomitant]
     Dates: start: 20041102
  12. FERROUS SULFATE TAB [Concomitant]

REACTIONS (5)
  - CARDIAC FAILURE [None]
  - DEEP VEIN THROMBOSIS [None]
  - DYSPNOEA [None]
  - ELECTROCARDIOGRAM ST SEGMENT DEPRESSION [None]
  - NORMOCHROMIC NORMOCYTIC ANAEMIA [None]
